FAERS Safety Report 15535535 (Version 1)
Quarter: 2018Q4

REPORT INFORMATION
  Report Type: Spontaneous
  Country: US (occurrence: US)
  Receive Date: 20181022
  Receipt Date: 20181022
  Transmission Date: 20190205
  Serious: No
  Sender: FDA-Public Use
  Company Number: US-TEVA-2018-US-964449

PATIENT
  Sex: Female

DRUGS (1)
  1. COPAXONE [Suspect]
     Active Substance: GLATIRAMER ACETATE
     Route: 065

REACTIONS (5)
  - Anxiety [Recovered/Resolved]
  - Vaginal haemorrhage [Unknown]
  - Depression [Recovering/Resolving]
  - Palpitations [Recovered/Resolved]
  - Nausea [Unknown]
